FAERS Safety Report 8433618-X (Version None)
Quarter: 2012Q2

REPORT INFORMATION
  Report Type: 
  Country: None (occurrence: None)
  Receive Date: 20120613
  Receipt Date: 20120531
  Transmission Date: 20120825
  Serious: No
  Sender: FDA-Public Use
  Company Number: US-ASTRAZENECA-2012SE26706

PATIENT
  Age: 49 Year
  Sex: Female
  Weight: 71.2 kg

DRUGS (5)
  1. ZYRTEC [Concomitant]
     Indication: RHINITIS ALLERGIC
     Dates: start: 20090701
  2. SINGULAIR [Concomitant]
     Indication: ASTHMA
     Dates: start: 20090701
  3. PROVENTIL-HFA [Concomitant]
     Indication: ASTHMA
     Dosage: AS NEEDED
     Dates: start: 20090701
  4. AZELASTINE HCL [Concomitant]
  5. SYMBICORT [Suspect]
     Indication: ASTHMA
     Dosage: 160/4.5MCG, TWO PUFFS TWO TIMES A DAY
     Route: 055
     Dates: start: 20110928

REACTIONS (7)
  - CHOKING SENSATION [None]
  - DYSPNOEA [None]
  - CHEST DISCOMFORT [None]
  - COUGH [None]
  - INTENTIONAL DRUG MISUSE [None]
  - CIRCUMSTANCE OR INFORMATION CAPABLE OF LEADING TO MEDICATION ERROR [None]
  - INCORRECT DOSE ADMINISTERED BY DEVICE [None]
